FAERS Safety Report 7138071-4 (Version None)
Quarter: 2010Q4

REPORT INFORMATION
  Report Type: 
  Country: None (occurrence: None)
  Receive Date: 20101119
  Receipt Date: 20100219
  Transmission Date: 20110411
  Serious: Yes (Other)
  Sender: FDA-Public Use
  Company Number: 1000011946

PATIENT
  Age: 57 Year
  Sex: Female

DRUGS (5)
  1. TIAZAC [Suspect]
     Indication: SYNCOPE
     Dosage: 180 MG (180 MG,1 IN 1 D),ORAL
     Route: 048
  2. TIAZAC [Suspect]
     Indication: VENTRICULAR TACHYCARDIA
     Dosage: 180 MG (180 MG,1 IN 1 D),ORAL
     Route: 048
  3. ULTRAM [Concomitant]
  4. WELLBUTRIN [Concomitant]
  5. ATIVAN [Concomitant]

REACTIONS (2)
  - FIBROMYALGIA [None]
  - SYNCOPE [None]
